FAERS Safety Report 9685978 (Version 1)
Quarter: 2013Q4

REPORT INFORMATION
  Report Type: Spontaneous
  Country: US (occurrence: US)
  Receive Date: 20131113
  Receipt Date: 20131113
  Transmission Date: 20140711
  Serious: No
  Sender: FDA-Public Use
  Company Number: US-ALLERGAN-1309214US

PATIENT
  Age: 40 Year
  Sex: Male

DRUGS (1)
  1. COMBIGAN[R] [Suspect]
     Indication: INTRAOCULAR PRESSURE TEST
     Dosage: 1 GTT, BID
     Route: 047
     Dates: start: 20130620, end: 20130620

REACTIONS (3)
  - Eye irritation [Recovering/Resolving]
  - Eye irritation [Recovering/Resolving]
  - Lacrimation increased [Recovering/Resolving]
